FAERS Safety Report 22206850 (Version 1)
Quarter: 2023Q2

REPORT INFORMATION
  Report Type: Spontaneous
  Country: US (occurrence: None)
  Receive Date: 20230413
  Receipt Date: 20230413
  Transmission Date: 20230721
  Serious: Yes (Hospitalization, Other)
  Sender: FDA-Public Use
  Company Number: US-Hikma Pharmaceuticals USA Inc.-US-H14001-23-01142

PATIENT
  Age: 84 Year

DRUGS (2)
  1. FUROSEMIDE [Suspect]
     Active Substance: FUROSEMIDE
     Indication: Product used for unknown indication
     Dosage: UNKNOWN
     Route: 065
  2. MACITENTAN [Suspect]
     Active Substance: MACITENTAN
     Indication: Pulmonary arterial hypertension
     Dosage: UNKNOWN
     Route: 048

REACTIONS (12)
  - Peripheral swelling [Unknown]
  - Fluid retention [Unknown]
  - Cardiac failure congestive [Recovered/Resolved]
  - Chills [Unknown]
  - Pneumonia [Recovered/Resolved]
  - Gouty arthritis [Unknown]
  - Condition aggravated [Unknown]
  - Gait inability [Unknown]
  - Musculoskeletal disorder [Unknown]
  - Diarrhoea [Recovering/Resolving]
  - Blood pressure decreased [Recovered/Resolved]
  - Pyrexia [Unknown]

NARRATIVE: CASE EVENT DATE: 20230212
